FAERS Safety Report 5568117-6 (Version None)
Quarter: 2007Q4

REPORT INFORMATION
  Report Type: 
  Country: None (occurrence: None)
  Receive Date: 20071218
  Receipt Date: 20071218
  Transmission Date: 20080405
  Serious: Yes (Hospitalization)
  Sender: FDA-Public Use
  Company Number: None

PATIENT
  Age: 61 Year
  Sex: Male

DRUGS (1)
  1. RITUXIMAB [Suspect]
     Indication: RHEUMATOID ARTHRITIS
     Dosage: 1000MG ONCE IV
     Route: 042
     Dates: start: 20070814, end: 20070814

REACTIONS (4)
  - ANGINA PECTORIS [None]
  - ANGIOEDEMA [None]
  - CHEST PAIN [None]
  - DYSPNOEA [None]
